FAERS Safety Report 6223543-7 (Version None)
Quarter: 2009Q2

REPORT INFORMATION
  Report Type: 
  Country: None (occurrence: None)
  Receive Date: 20090610
  Receipt Date: 20090601
  Transmission Date: 20091009
  Serious: No
  Sender: FDA-Public Use
  Company Number: C-09-0140-W

PATIENT
  Age: 70 Year
  Sex: Male
  Weight: 113.3993 kg

DRUGS (5)
  1. CAPTOPRIL [Suspect]
     Indication: HYPERTENSION
     Dosage: 1 TABLET BID, (047)
     Dates: start: 20081220, end: 20090301
  2. CARDIZEM [Concomitant]
  3. PLAVIX [Concomitant]
  4. ASPIRIN [Concomitant]
  5. LIPITOR [Concomitant]

REACTIONS (8)
  - BLOOD PRESSURE INCREASED [None]
  - DISEASE PROGRESSION [None]
  - DRUG INEFFECTIVE [None]
  - DRUG INTERACTION [None]
  - HYPERTENSION [None]
  - INCORRECT STORAGE OF DRUG [None]
  - PRODUCT QUALITY ISSUE [None]
  - PRODUCT SOLUBILITY ABNORMAL [None]
